FAERS Safety Report 21191994 (Version 1)
Quarter: 2022Q3

REPORT INFORMATION
  Report Type: Spontaneous
  Country: FR (occurrence: FR)
  Receive Date: 20220809
  Receipt Date: 20220809
  Transmission Date: 20221027
  Serious: Yes (Other)
  Sender: FDA-Public Use
  Company Number: None

PATIENT
  Age: 12 Year
  Sex: Male
  Weight: 40 kg

DRUGS (4)
  1. DEXAMETHASONE [Suspect]
     Active Substance: DEXAMETHASONE
     Indication: Meningitis pneumococcal
     Route: 042
     Dates: start: 20220509, end: 20220512
  2. NALBUPHINE HYDROCHLORIDE [Suspect]
     Active Substance: NALBUPHINE HYDROCHLORIDE
     Indication: Pain
     Dosage: INTRAVENOUS BOLUS
     Route: 042
     Dates: start: 20220509, end: 20220512
  3. AUGMENTIN [Concomitant]
     Active Substance: AMOXICILLIN\CLAVULANATE POTASSIUM
     Indication: Meningitis pneumococcal
     Dosage: INTRAVENOUS BOLUS
     Route: 042
     Dates: start: 20220508, end: 20220508
  4. GENTAMICIN [Concomitant]
     Active Substance: GENTAMICIN
     Indication: Meningitis pneumococcal
     Dosage: INTRAVENOUS BOLUS
     Route: 042
     Dates: start: 20220508, end: 20220509

REACTIONS (1)
  - Pancreatitis acute [Recovered/Resolved]

NARRATIVE: CASE EVENT DATE: 20220510
